FAERS Safety Report 17356313 (Version 1)
Quarter: 2020Q1

REPORT INFORMATION
  Report Type: Spontaneous
  Country: CA (occurrence: CA)
  Receive Date: 20200131
  Receipt Date: 20200131
  Transmission Date: 20200409
  Serious: Yes (Hospitalization, Other)
  Sender: FDA-Public Use
  Company Number: CA-TEVA-2020-CA-1177684

PATIENT
  Age: 82 Year
  Sex: Female

DRUGS (3)
  1. SANDOSTATIN [Suspect]
     Active Substance: OCTREOTIDE ACETATE
     Indication: MICROCYTIC ANAEMIA
     Route: 030
  2. BISOPROLOL [Suspect]
     Active Substance: BISOPROLOL
     Indication: PRODUCT USED FOR UNKNOWN INDICATION
     Route: 065
  3. CODEINE [Suspect]
     Active Substance: CODEINE
     Indication: PRODUCT USED FOR UNKNOWN INDICATION
     Route: 065

REACTIONS (26)
  - Gastroenteritis [Unknown]
  - Haemorrhage [Unknown]
  - Increased bronchial secretion [Unknown]
  - Asthenia [Unknown]
  - Blood pressure diastolic decreased [Unknown]
  - Blood pressure increased [Unknown]
  - Body temperature decreased [Unknown]
  - Feeling hot [Unknown]
  - Muscle fatigue [Unknown]
  - Abdominal pain [Unknown]
  - Arthralgia [Unknown]
  - Blood pressure systolic decreased [Unknown]
  - Bronchitis [Unknown]
  - Dementia Alzheimer^s type [Unknown]
  - Malaise [Unknown]
  - Product use in unapproved indication [Unknown]
  - Dizziness [Unknown]
  - Cough [Unknown]
  - Injection site pain [Unknown]
  - Decreased appetite [Unknown]
  - Gait disturbance [Unknown]
  - Heart rate decreased [Unknown]
  - Renal failure [Unknown]
  - Abdominal pain upper [Unknown]
  - Chest pain [Unknown]
  - Headache [Unknown]
